FAERS Safety Report 16443026 (Version 4)
Quarter: 2019Q3

REPORT INFORMATION
  Report Type: Report from Study
  Country: MX (occurrence: MX)
  Receive Date: 20190617
  Receipt Date: 20190719
  Transmission Date: 20191004
  Serious: Yes (Other)
  Sender: FDA-Public Use
  Company Number: PHHY2019MX121343

PATIENT
  Age: 55 Year
  Sex: Female
  Weight: 63 kg

DRUGS (2)
  1. PLAQUENIL [Concomitant]
     Active Substance: HYDROXYCHLOROQUINE SULFATE
     Indication: ROSACEA
     Dosage: 1 OT, ON MONDAYS AND THURSDAYS
     Route: 048
  2. TRAVATAN [Suspect]
     Active Substance: TRAVOPROST
     Indication: INTRAOCULAR PRESSURE TEST ABNORMAL
     Dosage: 1 GTT, QN, BOTH EYES (APPROXIMATELY 6 YEARS AGO)
     Route: 047

REACTIONS (11)
  - Gastrointestinal pain [Unknown]
  - Arthralgia [Not Recovered/Not Resolved]
  - Thirst [Unknown]
  - Overweight [Not Recovered/Not Resolved]
  - Gastrointestinal disorder [Unknown]
  - Diabetes mellitus [Unknown]
  - Headache [Not Recovered/Not Resolved]
  - Gastritis [Unknown]
  - Blindness [Not Recovered/Not Resolved]
  - Blood glucose increased [Not Recovered/Not Resolved]
  - Diverticulum [Unknown]

NARRATIVE: CASE EVENT DATE: 201903
